FAERS Safety Report 6600344-9 (Version None)
Quarter: 2010Q1

REPORT INFORMATION
  Report Type: 
  Country: None (occurrence: None)
  Receive Date: 20100217
  Receipt Date: 20100201
  Transmission Date: 20100710
  Serious: Yes (Other)
  Sender: FDA-Public Use
  Company Number: 1-21550506

PATIENT
  Age: 76 Year
  Sex: Male

DRUGS (1)
  1. WARFARIN SODIUM [Suspect]
     Dosage: 5 MG PER DAY

REACTIONS (3)
  - CYTOGENETIC ABNORMALITY [None]
  - DRUG EFFECT INCREASED [None]
  - INTERNATIONAL NORMALISED RATIO INCREASED [None]
